FAERS Safety Report 8518225-2 (Version None)
Quarter: 2012Q3

REPORT INFORMATION
  Report Type: 
  Country: None (occurrence: None)
  Receive Date: 20120718
  Receipt Date: 20111122
  Transmission Date: 20120928
  Serious: No
  Sender: FDA-Public Use
  Company Number: US-BRISTOL-MYERS SQUIBB COMPANY-16243313

PATIENT
  Age: 72 Year
  Sex: Male

DRUGS (4)
  1. DIGOXIN [Concomitant]
  2. LOVASTATIN [Concomitant]
  3. METOPROLOL SUCCINATE [Concomitant]
  4. WARFARIN SODIUM [Suspect]
     Dosage: IN THE EVNG

REACTIONS (1)
  - INTERNATIONAL NORMALISED RATIO INCREASED [None]
